FAERS Safety Report 13074532 (Version 1)
Quarter: 2016Q4

REPORT INFORMATION
  Report Type: Report from Study
  Country: US (occurrence: US)
  Receive Date: 20161230
  Receipt Date: 20161230
  Transmission Date: 20170207
  Serious: Yes (Death, Other)
  Sender: FDA-Public Use
  Company Number: US-JAZZ-2016-US-024645

PATIENT
  Age: 20 Year
  Sex: Male

DRUGS (1)
  1. DEFITELIO [Suspect]
     Active Substance: DEFIBROTIDE SODIUM
     Indication: VENOOCCLUSIVE DISEASE
     Dates: start: 20161018, end: 20161107

REACTIONS (1)
  - Death [Fatal]

NARRATIVE: CASE EVENT DATE: 20161107
